FAERS Safety Report 6433310 (Version 2)
Quarter: 2018Q4

REPORT INFORMATION
  Report Type: Spontaneous
  Country: JP (occurrence: JP)
  Receive Date: 20071002
  Receipt Date: 20181022
  Transmission Date: 20190205
  Serious: Yes (Other)
  Sender: FDA-Public Use
  Company Number: PHBS2007JP13821

PATIENT
  Age: 74 Year
  Sex: Male

DRUGS (10)
  1. SIFROL [Suspect]
     Active Substance: PRAMIPEXOLE
     Dosage: 3 MG, QD
     Route: 048
     Dates: start: 20070827
  2. MADOPAR [Concomitant]
     Active Substance: BENSERAZIDE HYDROCHLORIDE\LEVODOPA
     Indication: PRODUCT USED FOR UNKNOWN INDICATION
     Dosage: 300 MG, QD
     Route: 048
  3. COMTAN [Suspect]
     Active Substance: ENTACAPONE
     Indication: PARKINSON^S DISEASE
     Dosage: 100 MG, TID
     Route: 048
     Dates: start: 20070707, end: 20070807
  4. SIFROL [Suspect]
     Active Substance: PRAMIPEXOLE
     Indication: PRODUCT USED FOR UNKNOWN INDICATION
     Dosage: 1.5 MG, QD
     Route: 048
  5. COMTAN [Suspect]
     Active Substance: ENTACAPONE
     Dosage: 200 MG, TID
     Route: 048
     Dates: start: 20070808, end: 20070815
  6. LEVODOPA-CARBIDOPA [Concomitant]
     Active Substance: CARBIDOPA\LEVODOPA
     Indication: PARKINSON^S DISEASE
     Dosage: 100 MG, 5QD
     Route: 048
  7. FP [Concomitant]
     Active Substance: SELEGILINE HYDROCHLORIDE
     Indication: PRODUCT USED FOR UNKNOWN INDICATION
     Dosage: 10 MG, QD
     Route: 048
  8. COMTAN [Suspect]
     Active Substance: ENTACAPONE
     Dosage: 100 MG, TID
     Route: 048
     Dates: start: 20070820
  9. SIFROL [Suspect]
     Active Substance: PRAMIPEXOLE
     Dosage: 1.5 MG, QD
     Route: 048
     Dates: start: 20070817, end: 20070826
  10. SIFROL [Suspect]
     Active Substance: PRAMIPEXOLE
     Dosage: 3 MG, QD
     Route: 048
     Dates: start: 20070801, end: 20070813

REACTIONS (5)
  - Hallucination [Recovering/Resolving]
  - Delusion [Recovering/Resolving]
  - Confusional state [Unknown]
  - Therapeutic response shortened [Unknown]
  - Restlessness [Recovering/Resolving]

NARRATIVE: CASE EVENT DATE: 20070813
